FAERS Safety Report 7082839-X (Version None)
Quarter: 2010Q4

REPORT INFORMATION
  Report Type: 
  Country: None (occurrence: None)
  Receive Date: 20101026
  Receipt Date: 20101013
  Transmission Date: 20110411
  Serious: Yes (Hospitalization)
  Sender: FDA-Public Use
  Company Number: 017848

PATIENT
  Sex: Male
  Weight: 76 kg

DRUGS (13)
  1. CERTOLIZUMAB PEGOL (CERTOLIZUMAB PEGOL) [Suspect]
     Indication: RHEUMATOID ARTHRITIS
     Dosage: (400 MG 1X/2 WEEKS, STUDY: CDP870-27, NBR OF DOSES: 26 SUBCUTANEOUS), (400 MG 1X/2 WEEKS, SUBCUTANEO
     Route: 058
     Dates: start: 20050815, end: 20060731
  2. CERTOLIZUMAB PEGOL (CERTOLIZUMAB PEGOL) [Suspect]
     Indication: RHEUMATOID ARTHRITIS
     Dosage: (400 MG 1X/2 WEEKS, STUDY: CDP870-27, NBR OF DOSES: 26 SUBCUTANEOUS), (400 MG 1X/2 WEEKS, SUBCUTANEO
     Route: 058
     Dates: start: 20060814, end: 20071230
  3. CERTOLIZUMAB PEGOL (CERTOLIZUMAB PEGOL) [Suspect]
     Indication: RHEUMATOID ARTHRITIS
     Dosage: (400 MG 1X/2 WEEKS, STUDY: CDP870-27, NBR OF DOSES: 26 SUBCUTANEOUS), (400 MG 1X/2 WEEKS, SUBCUTANEO
     Route: 058
     Dates: end: 20100821
  4. METHOTREXATE [Concomitant]
  5. FOLIC ACID [Concomitant]
  6. ATENOLOL [Concomitant]
  7. RENITEN /00574902/ [Concomitant]
  8. AMLODIPINE BESYLATE [Concomitant]
  9. SIMVASTATIN [Concomitant]
  10. OMEPRAZOLE [Concomitant]
  11. CALCIUM [Concomitant]
  12. ASPIRIN [Concomitant]
  13. RAMIPRIL [Concomitant]

REACTIONS (5)
  - ANORECTAL INFECTION [None]
  - ARTHRITIS INFECTIVE [None]
  - BRONCHITIS [None]
  - OSTEOPOROSIS [None]
  - PEPTIC ULCER [None]
